FAERS Safety Report 21344950 (Version 1)
Quarter: 2022Q3

REPORT INFORMATION
  Report Type: Spontaneous
  Country: BE (occurrence: FR)
  Receive Date: 20220916
  Receipt Date: 20220916
  Transmission Date: 20221027
  Serious: Yes (Death, Hospitalization, Other)
  Sender: FDA-Public Use
  Company Number: BE-BRISTOL-MYERS SQUIBB COMPANY-2022-106854

PATIENT
  Sex: Male

DRUGS (1)
  1. NIVOLUMAB [Suspect]
     Active Substance: NIVOLUMAB
     Indication: Mesothelioma
     Dosage: DOSE: UNAVAILABLE; FREQ: UNAVAILABLE
     Route: 065
     Dates: start: 20211025, end: 20220725

REACTIONS (6)
  - Diarrhoea [Unknown]
  - Chest pain [Recovering/Resolving]
  - Nausea [Recovering/Resolving]
  - Liver disorder [Unknown]
  - Myocardial infarction [Fatal]
  - Intentional product use issue [Unknown]

NARRATIVE: CASE EVENT DATE: 20220701
